FAERS Safety Report 14194319 (Version 2)
Quarter: 2018Q4

REPORT INFORMATION
  Report Type: Spontaneous
  Country: US (occurrence: US)
  Receive Date: 20171116
  Receipt Date: 20181105
  Transmission Date: 20190204
  Serious: Yes (Other)
  Sender: FDA-Public Use
  Company Number: US-PFIZER INC-2017488587

PATIENT
  Age: 52 Year
  Sex: Female

DRUGS (3)
  1. NOVOCAIN [Suspect]
     Active Substance: PROCAINE HYDROCHLORIDE
     Dosage: UNK
  2. STRAWBERRY EXTRACT (BIFIDOBACTERIUM\LACTOBACILLUS) [Suspect]
     Active Substance: PROBIOTICS NOS
     Dosage: UNK
  3. PROCAINAMIDE HCL [Suspect]
     Active Substance: PROCAINAMIDE HYDROCHLORIDE
     Dosage: UNK

REACTIONS (3)
  - Anaphylactic reaction [Unknown]
  - Drug hypersensitivity [Unknown]
  - Urticaria [Unknown]
